FAERS Safety Report 7957356-2 (Version None)
Quarter: 2011Q4

REPORT INFORMATION
  Report Type: 
  Country: None (occurrence: None)
  Receive Date: 20111205
  Receipt Date: 20111125
  Transmission Date: 20120403
  Serious: Yes (Hospitalization, Other)
  Sender: FDA-Public Use
  Company Number: PHHY2011FR103869

PATIENT
  Age: 54 Year
  Sex: Female

DRUGS (9)
  1. PREDNISONE TAB [Suspect]
     Indication: RENAL TRANSPLANT
     Dosage: 5 MG, QD
  2. MYCOPHENOLATE MOFETIL [Suspect]
     Indication: RENAL TRANSPLANT
     Dosage: 500 MG, BID
  3. AMLODIPINE [Concomitant]
     Indication: HYPERTENSION
     Dosage: 5 MG, QD
  4. TACROLIMUS [Suspect]
     Dosage: 2 MG, QD
  5. VALGANCICLOVIR [Concomitant]
     Indication: CYTOMEGALOVIRUS INFECTION
  6. CELIPROLOL [Concomitant]
     Indication: HYPERTENSION
     Dosage: 200 MG, UNK
  7. TACROLIMUS [Suspect]
     Indication: RENAL TRANSPLANT
     Dosage: 4.5 MG, QD
     Route: 048
  8. FLUINDIONE [Concomitant]
     Indication: GRAFT THROMBOSIS
     Dosage: 20 MG, QD
  9. REPAGLINIDE [Concomitant]
     Indication: TYPE 2 DIABETES MELLITUS
     Dosage: 1 MG, TID

REACTIONS (15)
  - PYREXIA [None]
  - MUCOSAL NECROSIS [None]
  - CONDITION AGGRAVATED [None]
  - GENERAL PHYSICAL HEALTH DETERIORATION [None]
  - HEADACHE [None]
  - LEUKOPENIA [None]
  - OEDEMA MUCOSAL [None]
  - NASAL OEDEMA [None]
  - RENAL FAILURE [None]
  - ZYGOMYCOSIS [None]
  - PARAESTHESIA [None]
  - PHOTOPHOBIA [None]
  - INFLAMMATION [None]
  - ANAEMIA [None]
  - EYELID OEDEMA [None]
